FAERS Safety Report 15365084 (Version 2)
Quarter: 2018Q4

REPORT INFORMATION
  Report Type: Spontaneous
  Country: US (occurrence: US)
  Receive Date: 20180910
  Receipt Date: 20181002
  Transmission Date: 20190204
  Serious: Yes (Other)
  Sender: FDA-Public Use
  Company Number: US-009507513-1809USA001812

PATIENT
  Age: 49 Year
  Sex: Male

DRUGS (1)
  1. KEYTRUDA [Suspect]
     Active Substance: PEMBROLIZUMAB
     Indication: HEREDITARY NON-POLYPOSIS COLORECTAL CANCER SYNDROME
     Dosage: UNK

REACTIONS (5)
  - Autoimmune pancreatitis [Unknown]
  - Type 1 diabetes mellitus [Unknown]
  - Product use in unapproved indication [Unknown]
  - Immune-mediated adverse reaction [Unknown]
  - Autoimmune colitis [Unknown]
